FAERS Safety Report 21529598 (Version 1)
Quarter: 2022Q4

REPORT INFORMATION
  Report Type: Report from Study
  Country: CH (occurrence: None)
  Receive Date: 20221031
  Receipt Date: 20221031
  Transmission Date: 20230112
  Serious: Yes (Death, Other)
  Sender: FDA-Public Use
  Company Number: 2022A359653

PATIENT
  Age: 80 Year
  Sex: Male

DRUGS (1)
  1. CALQUENCE [Suspect]
     Active Substance: ACALABRUTINIB
     Route: 048

REACTIONS (2)
  - Death [Fatal]
  - Histiocytic sarcoma [Unknown]

NARRATIVE: CASE EVENT DATE: 20220701
